FAERS Safety Report 6056701-5 (Version None)
Quarter: 2009Q1

REPORT INFORMATION
  Report Type: 
  Country: None (occurrence: None)
  Receive Date: 20090129
  Receipt Date: 20080411
  Transmission Date: 20090719
  Serious: No
  Sender: FDA-Public Use
  Company Number: A0722371A

PATIENT
  Age: 28 Year
  Sex: Female

DRUGS (10)
  1. EPIVIR [Suspect]
     Indication: HIV INFECTION
     Dosage: 300MG PER DAY
     Route: 048
  2. RETROVIR [Suspect]
     Indication: HIV INFECTION
     Dosage: 400MG SINGLE DOSE
     Route: 042
     Dates: start: 20080410, end: 20080410
  3. ZIAGEN [Suspect]
     Indication: HIV INFECTION
     Dosage: 600MG PER DAY
     Route: 048
  4. REYATAZ [Suspect]
     Indication: HIV INFECTION
     Dosage: 200MG PER DAY
  5. VITAMIN TAB [Concomitant]
  6. MOTRIN [Concomitant]
  7. SIMETHICONE [Concomitant]
  8. DEXTROSE 5% [Concomitant]
  9. BACTRIM [Concomitant]
     Route: 042
  10. ZITHROMAX [Concomitant]
     Route: 042

REACTIONS (3)
  - DRUG EXPOSURE DURING PREGNANCY [None]
  - DRUG SCREEN POSITIVE [None]
  - LIVE BIRTH [None]
